FAERS Safety Report 9169205 (Version 2)
Quarter: 2013Q2

REPORT INFORMATION
  Report Type: Spontaneous
  Country: US (occurrence: US)
  Receive Date: 20130318
  Receipt Date: 20130409
  Transmission Date: 20140414
  Serious: No
  Sender: FDA-Public Use
  Company Number: US-009507513-1303USA008314

PATIENT
  Age: 55 Year
  Sex: Male
  Weight: 90.7 kg

DRUGS (2)
  1. LOTRIMIN ULTRA [Suspect]
     Indication: TINEA PEDIS
     Dosage: UNK, UNKNOWN
     Route: 061
     Dates: start: 20130301
  2. LOTRIMIN ULTRA [Suspect]
     Indication: MEDICAL OBSERVATION

REACTIONS (1)
  - Drug ineffective [Unknown]
